FAERS Safety Report 21823895 (Version 2)
Quarter: 2023Q1

REPORT INFORMATION
  Report Type: Report from Study
  Country: US (occurrence: US)
  Receive Date: 20230105
  Receipt Date: 20230328
  Transmission Date: 20230417
  Serious: Yes (Other)
  Sender: FDA-Public Use
  Company Number: US-ABBVIE-4257298

PATIENT
  Sex: Female

DRUGS (2)
  1. HUMIRA [Suspect]
     Active Substance: ADALIMUMAB
     Indication: Psoriatic arthropathy
     Route: 058
     Dates: end: 2017
  2. COSENTYX [Concomitant]
     Active Substance: SECUKINUMAB
     Indication: Arthritis
     Route: 065

REACTIONS (5)
  - Bladder cancer [Unknown]
  - Multiple allergies [Unknown]
  - Arthritis [Unknown]
  - Impaired quality of life [Unknown]
  - Disability [Unknown]
